FAERS Safety Report 15023475 (Version 1)
Quarter: 2018Q2

REPORT INFORMATION
  Report Type: Spontaneous
  Country: US (occurrence: US)
  Receive Date: 20180602
  Receipt Date: 20180602
  Transmission Date: 20180711
  Serious: Yes (Disabling)
  Sender: FDA-Public Use
  Company Number: None

PATIENT
  Age: 53 Year
  Sex: Female
  Weight: 74.25 kg

DRUGS (6)
  1. ZYRTEC [Suspect]
     Active Substance: CETIRIZINE HYDROCHLORIDE
     Indication: NASAL CONGESTION
     Route: 048
     Dates: start: 20080101, end: 20180201
  2. PROBIOTICS [Concomitant]
     Active Substance: PROBIOTICS NOS
  3. ZYRTEC [Suspect]
     Active Substance: CETIRIZINE HYDROCHLORIDE
     Indication: MULTIPLE ALLERGIES
     Route: 048
     Dates: start: 20080101, end: 20180201
  4. LEXAPRO [Concomitant]
     Active Substance: ESCITALOPRAM OXALATE
  5. LEVOTHYROXINE. [Concomitant]
     Active Substance: LEVOTHYROXINE
  6. ZYRTEC [Suspect]
     Active Substance: CETIRIZINE HYDROCHLORIDE
     Indication: LACRIMATION INCREASED
     Route: 048
     Dates: start: 20080101, end: 20180201

REACTIONS (8)
  - Pruritus [None]
  - Drug ineffective [None]
  - Product label issue [None]
  - Burning sensation [None]
  - Middle insomnia [None]
  - Impaired work ability [None]
  - Pruritus generalised [None]
  - Thirst [None]

NARRATIVE: CASE EVENT DATE: 20180201
